FAERS Safety Report 9377676 (Version 2)
Quarter: 2013Q3

REPORT INFORMATION
  Report Type: Report from Study
  Country: CA (occurrence: CA)
  Receive Date: 20130701
  Receipt Date: 20130717
  Transmission Date: 20140515
  Serious: Yes (Other)
  Sender: FDA-Public Use
  Company Number: CA-UCBSA-084115

PATIENT
  Age: 49 Year
  Sex: Female
  Weight: 86.2 kg

DRUGS (6)
  1. CIMZIA [Suspect]
     Indication: RHEUMATOID ARTHRITIS
     Route: 058
     Dates: start: 20130524
  2. CIMZIA [Suspect]
     Indication: RHEUMATOID ARTHRITIS
     Route: 058
     Dates: start: 20130328, end: 20130509
  3. CIMZIA [Suspect]
     Indication: RHEUMATOID ARTHRITIS
     Route: 058
     Dates: start: 20130214, end: 20130314
  4. MTX [Concomitant]
     Indication: RHEUMATOID ARTHRITIS
     Dates: start: 201111
  5. METFORMIN [Concomitant]
     Indication: HYPOTRICHOSIS
     Route: 048
  6. SPIROLACTONE [Concomitant]
     Indication: HYPOTRICHOSIS
     Route: 048

REACTIONS (6)
  - Fungal skin infection [Not Recovered/Not Resolved]
  - Infected cyst [Not Recovered/Not Resolved]
  - Muscle spasms [Not Recovered/Not Resolved]
  - Alopecia [Not Recovered/Not Resolved]
  - Nasopharyngitis [Not Recovered/Not Resolved]
  - Rash pruritic [Not Recovered/Not Resolved]
